FAERS Safety Report 10043620 (Version 1)
Quarter: 2014Q1

REPORT INFORMATION
  Report Type: Report from Study
  Country: US (occurrence: US)
  Receive Date: 20140328
  Receipt Date: 20140328
  Transmission Date: 20141002
  Serious: Yes (Other)
  Sender: FDA-Public Use
  Company Number: US-JNJFOC-20140314316

PATIENT
  Age: 76 Year
  Sex: Female
  Weight: 65.77 kg

DRUGS (2)
  1. REMICADE [Suspect]
     Indication: RHEUMATOID ARTHRITIS
     Dosage: INFUSION MISSED ON 05-MAR-2014 DUE TO BLADDER INFECTION
     Route: 042
     Dates: start: 20140305, end: 20140305
  2. REMICADE [Suspect]
     Indication: RHEUMATOID ARTHRITIS
     Route: 042

REACTIONS (5)
  - Haemoglobin decreased [Recovered/Resolved]
  - Bladder disorder [Unknown]
  - Cystitis [Unknown]
  - Arthralgia [Recovered/Resolved]
  - Pain in extremity [Recovered/Resolved]
